FAERS Safety Report 10230126 (Version 1)
Quarter: 2014Q2

REPORT INFORMATION
  Report Type: Spontaneous
  Country: US (occurrence: None)
  Receive Date: 20140506
  Receipt Date: 20140506
  Transmission Date: 20141212
  Serious: Yes (Other)
  Sender: FDA-Public Use
  Company Number: 1310287

PATIENT
  Age: 70 Year
  Sex: Female

DRUGS (1)
  1. AVASTIN (BEVACIZUMAB) [Suspect]
     Indication: PRODUCT USED FOR UNKNOWN INDICATION
     Dosage: EVERY OTHER WEEK, UNKNOWN

REACTIONS (2)
  - Hypertension [None]
  - Headache [None]
